FAERS Safety Report 8517616-3 (Version None)
Quarter: 2012Q3

REPORT INFORMATION
  Report Type: 
  Country: None (occurrence: None)
  Receive Date: 20120718
  Receipt Date: 20120709
  Transmission Date: 20120928
  Serious: Yes (Other)
  Sender: FDA-Public Use
  Company Number: US-ASTRAZENECA-2012SE47178

PATIENT
  Age: 63 Year
  Sex: Female

DRUGS (4)
  1. ALEVE [Concomitant]
  2. CRESTOR [Suspect]
     Route: 048
  3. OXYCONTIN [Concomitant]
  4. TYLENOL [Concomitant]

REACTIONS (3)
  - FALL [None]
  - NASOPHARYNGITIS [None]
  - ANKLE FRACTURE [None]
